FAERS Safety Report 10614640 (Version 1)
Quarter: 2014Q4

REPORT INFORMATION
  Report Type: Report from Study
  Country: US (occurrence: US)
  Receive Date: 20141130
  Receipt Date: 20141130
  Transmission Date: 20150529
  Serious: Yes (Hospitalization)
  Sender: FDA-Public Use
  Company Number: US-BRISTOL-MYERS SQUIBB COMPANY-21646641

PATIENT
  Age: 72 Year
  Sex: Male
  Weight: 81.5 kg

DRUGS (1)
  1. IPILIMUMAB [Suspect]
     Active Substance: IPILIMUMAB
     Indication: MALIGNANT MELANOMA
     Dosage: INDCTION:Q3WK X 4DOSE?MAINT: Q12WK X 24,36, 48 + 60WKS?TOTAL DOSE: 244.5MG?LST DSE: 13NOV14.
     Route: 042
     Dates: start: 20140910

REACTIONS (1)
  - Dehydration [Not Recovered/Not Resolved]

NARRATIVE: CASE EVENT DATE: 20141124
